FAERS Safety Report 21368718 (Version 4)
Quarter: 2022Q4

REPORT INFORMATION
  Report Type: Spontaneous
  Country: US (occurrence: US)
  Receive Date: 20220923
  Receipt Date: 20221105
  Transmission Date: 20230112
  Serious: Yes (Hospitalization, Other)
  Sender: FDA-Public Use
  Company Number: US-UNITED THERAPEUTICS-UNT-2022-021301

PATIENT
  Sex: Female
  Weight: 76.19 kg

DRUGS (3)
  1. REMODULIN [Suspect]
     Active Substance: TREPROSTINIL
     Indication: Pulmonary arterial hypertension
     Dosage: UNK, CONTINUING
     Route: 058
     Dates: start: 20211109
  2. REMODULIN [Suspect]
     Active Substance: TREPROSTINIL
     Dosage: 0.076 ?G/KG, CONTINUING
     Route: 058
  3. REMODULIN [Suspect]
     Active Substance: TREPROSTINIL
     Dosage: 0.074 ?G/KG, CONTINUING
     Route: 058

REACTIONS (8)
  - Pulmonary hypertension [Unknown]
  - Hypervolaemia [Unknown]
  - Dyspnoea exertional [Unknown]
  - Decreased activity [Unknown]
  - Dyspnoea [Unknown]
  - SARS-CoV-2 test positive [Not Recovered/Not Resolved]
  - Respiratory tract congestion [Unknown]
  - Flushing [Unknown]

NARRATIVE: CASE EVENT DATE: 20220101
